FAERS Safety Report 8356759-4 (Version None)
Quarter: 2012Q2

REPORT INFORMATION
  Report Type: 
  Country: None (occurrence: None)
  Receive Date: 20120514
  Receipt Date: 20120508
  Transmission Date: 20120825
  Serious: No
  Sender: FDA-Public Use
  Company Number: US-BAYER-2012-046391

PATIENT
  Age: 72 Year
  Sex: Female
  Weight: 68 kg

DRUGS (2)
  1. SYNTHROID [Concomitant]
     Dosage: UNK
  2. NAPROXEN (ALEVE) [Suspect]
     Indication: BACK PAIN
     Dosage: 1 DF, PRN
     Route: 048
     Dates: start: 20120401

REACTIONS (1)
  - ABDOMINAL DISCOMFORT [None]
